FAERS Safety Report 8887764 (Version 2)
Quarter: 2012Q4

REPORT INFORMATION
  Report Type: Report from Study
  Country: JP (occurrence: JP)
  Receive Date: 20121106
  Receipt Date: 20121116
  Transmission Date: 20130627
  Serious: Yes (Hospitalization)
  Sender: FDA-Public Use
  Company Number: JP-SANOFI-AVENTIS-2012SA080387

PATIENT
  Age: 71 Year
  Sex: Male
  Weight: 48 kg

DRUGS (11)
  1. OXALIPLATIN [Suspect]
     Indication: GASTRIC CANCER
     Route: 041
     Dates: start: 20120830
  2. OXALIPLATIN [Suspect]
     Indication: GASTRIC CANCER
     Route: 041
     Dates: start: 20120927
  3. CAPECITABINE [Suspect]
     Indication: GASTRIC CANCER
     Route: 048
     Dates: start: 20120830
  4. CAPECITABINE [Suspect]
     Indication: GASTRIC CANCER
     Route: 065
     Dates: start: 20120926, end: 20121010
  5. PERINDOPRIL ERBUMINE [Concomitant]
     Dates: start: 2007
  6. AMLODIPINE BESILATE [Concomitant]
     Dates: start: 2007
  7. LACTEC [Concomitant]
     Dates: start: 20121024, end: 20121024
  8. BUSCOPAN [Concomitant]
     Dates: start: 20121024, end: 20121024
  9. CEFAZOLIN SODIUM [Concomitant]
     Dates: start: 20121024, end: 20121029
  10. OMEPRAL [Concomitant]
     Dates: start: 20121024, end: 20121031
  11. INTRALIPOS [Concomitant]
     Dates: start: 20121025, end: 20121030

REACTIONS (1)
  - Anastomotic complication [Recovered/Resolved]
